FAERS Safety Report 6772271-8 (Version None)
Quarter: 2010Q2

REPORT INFORMATION
  Report Type: 
  Country: None (occurrence: None)
  Receive Date: 20100616
  Receipt Date: 20100216
  Transmission Date: 20101027
  Serious: No
  Sender: FDA-Public Use
  Company Number: US-ASTRAZENECA-2010SE06813

PATIENT
  Age: 7 Year
  Sex: Male
  Weight: 35.4 kg

DRUGS (3)
  1. PULMICORT REPULES [Suspect]
     Route: 055
  2. PULMICORT REPULES [Suspect]
     Route: 055
     Dates: start: 20091201, end: 20100101
  3. ALBUTEROL [Concomitant]

REACTIONS (2)
  - HEAD TITUBATION [None]
  - WEIGHT INCREASED [None]
